FAERS Safety Report 8065356-X (Version None)
Quarter: 2012Q1

REPORT INFORMATION
  Report Type: 
  Country: None (occurrence: None)
  Receive Date: 20120124
  Receipt Date: 20120118
  Transmission Date: 20120608
  Serious: Yes (Other)
  Sender: FDA-Public Use
  Company Number: US-BAYER-2011-114856

PATIENT
  Age: 72 Year
  Sex: Female

DRUGS (1)
  1. SORAFENIB (RAF KINASE INHIBITOR) [Suspect]
     Indication: THYROID CANCER
     Dosage: 400 MG, BID
     Dates: start: 20111121

REACTIONS (9)
  - DYSPHONIA [None]
  - PAIN IN EXTREMITY [None]
  - BLOOD GLUCOSE INCREASED [None]
  - PRURITUS [None]
  - DYSPNOEA [None]
  - MIDDLE EAR DISORDER [None]
  - BLOOD PRESSURE DIASTOLIC INCREASED [None]
  - MUSCLE SPASMS [None]
  - ORAL PAIN [None]
